FAERS Safety Report 12376876 (Version 2)
Quarter: 2016Q2

REPORT INFORMATION
  Report Type: Report from Study
  Country: US (occurrence: US)
  Receive Date: 20160517
  Receipt Date: 20160517
  Transmission Date: 20160815
  Serious: No
  Sender: FDA-Public Use
  Company Number: US-MALLINCKRODT-T201503075

PATIENT
  Age: 66 Year
  Sex: Female

DRUGS (1)
  1. REPOSITORY CORTICOTROPIN INJECTION [Suspect]
     Active Substance: CORTICOTROPIN
     Indication: RHEUMATOID ARTHRITIS
     Dosage: UNK DOSE, TWICE WEEKLY
     Route: 058
     Dates: start: 20130601

REACTIONS (7)
  - Alopecia [Unknown]
  - Injection site pain [Recovered/Resolved]
  - Renal artery stenosis [Unknown]
  - Increased tendency to bruise [Unknown]
  - Skin fragility [Unknown]
  - Hair growth abnormal [Not Recovered/Not Resolved]
  - Bursitis [Unknown]

NARRATIVE: CASE EVENT DATE: 201412
